FAERS Safety Report 4384294-7 (Version None)
Quarter: 2004Q2

REPORT INFORMATION
  Report Type: 
  Country: None (occurrence: None)
  Receive Date: 20040618
  Receipt Date: 20040614
  Transmission Date: 20050107
  Serious: Yes (Hospitalization)
  Sender: FDA-Public Use
  Company Number: US-SHR-04-020933

PATIENT
  Age: 53 Year
  Sex: Female

DRUGS (6)
  1. BETASERON [Suspect]
     Indication: MULTIPLE SCLEROSIS
     Dosage: 8 MIU, EVERY 2D, SUBCUTANEOUS
     Route: 058
     Dates: start: 19930824
  2. ZOLOFT [Concomitant]
  3. QUININE SULFATE (QUININE SULFATE) [Concomitant]
  4. BACLOFEN [Concomitant]
  5. DITROPAN [Concomitant]
  6. VICODIN [Concomitant]

REACTIONS (2)
  - FEMUR FRACTURE [None]
  - PAIN IN EXTREMITY [None]
